FAERS Safety Report 13407315 (Version 4)
Quarter: 2017Q2

REPORT INFORMATION
  Report Type: Report from Study
  Country: US (occurrence: US)
  Receive Date: 20170405
  Receipt Date: 20170526
  Transmission Date: 20170830
  Serious: Yes (Hospitalization, Other)
  Sender: FDA-Public Use
  Company Number: US-TAKEDA-2016MPI010037

PATIENT
  Sex: Female
  Weight: 68 kg

DRUGS (9)
  1. ACYCLOVIR                          /00587301/ [Concomitant]
     Active Substance: ACYCLOVIR
     Dosage: UNK
  2. VELCADE [Suspect]
     Active Substance: BORTEZOMIB
     Indication: PLASMA CELL MYELOMA
     Dosage: UNK
     Route: 065
  3. BABY ASPIRIN [Concomitant]
     Active Substance: ASPIRIN
     Dosage: UNK
  4. METOLAZONE. [Concomitant]
     Active Substance: METOLAZONE
     Dosage: UNK
  5. OMEPRAZOLE. [Concomitant]
     Active Substance: OMEPRAZOLE
     Dosage: UNK
  6. DOXYCYCLINE. [Concomitant]
     Active Substance: DOXYCYCLINE
     Dosage: UNK
  7. BUMETANIDE. [Concomitant]
     Active Substance: BUMETANIDE
     Dosage: UNK
  8. MIDODRINA [Concomitant]
     Dosage: UNK
  9. IXAZOMIB [Suspect]
     Active Substance: IXAZOMIB
     Indication: PLASMA CELL MYELOMA
     Dosage: 3 MG, UNK
     Route: 048
     Dates: start: 20161024

REACTIONS (19)
  - Off label use [Unknown]
  - Flatulence [Unknown]
  - Influenza like illness [Unknown]
  - Neuropathy peripheral [Recovering/Resolving]
  - Sinus pain [Unknown]
  - Skin discolouration [Unknown]
  - Muscle tightness [Unknown]
  - Nasal discomfort [Unknown]
  - Fatigue [Unknown]
  - Eye pain [Unknown]
  - Hair growth abnormal [Unknown]
  - Feeling hot [Unknown]
  - Pneumonia [Recovered/Resolved]
  - Feeling drunk [Unknown]
  - Oropharyngeal pain [Unknown]
  - Pain in extremity [Unknown]
  - Back pain [Unknown]
  - Seizure [Recovered/Resolved]
  - Constipation [Unknown]
